FAERS Safety Report 8392527-5 (Version None)
Quarter: 2012Q2

REPORT INFORMATION
  Report Type: 
  Country: None (occurrence: None)
  Receive Date: 20120529
  Receipt Date: 20120518
  Transmission Date: 20120825
  Serious: Yes (Hospitalization)
  Sender: FDA-Public Use
  Company Number: US-MERCK-1201USA01163

PATIENT
  Age: 65 Year
  Sex: Female

DRUGS (6)
  1. FOSAMAX [Suspect]
     Route: 048
     Dates: start: 20000101
  2. FOSAMAX PLUS D [Suspect]
     Indication: OSTEOPOROSIS
     Route: 048
     Dates: start: 20070101
  3. NORVASC [Concomitant]
     Indication: HYPERTENSION
     Route: 065
  4. FOSAMAX [Suspect]
     Indication: OSTEOPOROSIS
     Route: 048
     Dates: start: 20000101, end: 20071001
  5. FORTEO [Concomitant]
     Indication: OSTEOPOROSIS
     Route: 065
  6. DIOVAN [Concomitant]
     Indication: HYPERTENSION
     Route: 065

REACTIONS (32)
  - CHRONIC OBSTRUCTIVE PULMONARY DISEASE [None]
  - URETHRAL DISORDER [None]
  - INTERVERTEBRAL DISC DEGENERATION [None]
  - ATRIAL FIBRILLATION [None]
  - LIPOHYPERTROPHY [None]
  - HAEMORRHOIDS [None]
  - ARTHROPATHY [None]
  - RENAL CYST [None]
  - BUNDLE BRANCH BLOCK LEFT [None]
  - URETHRAL STENOSIS [None]
  - FRACTURE [None]
  - ASTHMA [None]
  - MITRAL VALVE INCOMPETENCE [None]
  - CARDIAC MURMUR [None]
  - DRUG INEFFECTIVE [None]
  - SUPRAVENTRICULAR EXTRASYSTOLES [None]
  - SYNCOPE [None]
  - BRONCHITIS [None]
  - SCAPULA FRACTURE [None]
  - BACK PAIN [None]
  - COUGH [None]
  - FEMUR FRACTURE [None]
  - HAEMATURIA [None]
  - STRESS URINARY INCONTINENCE [None]
  - HYPERCHOLESTEROLAEMIA [None]
  - BLADDER DISORDER [None]
  - LIGAMENT SPRAIN [None]
  - MITRAL VALVE PROLAPSE [None]
  - PHARYNGOESOPHAGEAL DIVERTICULUM [None]
  - TIBIA FRACTURE [None]
  - CONSTIPATION [None]
  - OSTEOARTHRITIS [None]
